FAERS Safety Report 11620924 (Version 1)
Quarter: 2015Q4

REPORT INFORMATION
  Report Type: Report from Study
  Country: FR (occurrence: FR)
  Receive Date: 20151012
  Receipt Date: 20151012
  Transmission Date: 20160304
  Serious: Yes (Other)
  Sender: FDA-Public Use
  Company Number: PHHY2013FR022132

PATIENT
  Age: 60 Year
  Sex: Male

DRUGS (4)
  1. MYFORTIC [Concomitant]
     Active Substance: MYCOPHENOLATE SODIUM
     Indication: IMMUNOSUPPRESSION
     Dosage: 720 MG, BID
     Route: 048
     Dates: start: 20100326, end: 20110506
  2. PROGRAF [Concomitant]
     Active Substance: TACROLIMUS\TACROLIMUS ANHYDROUS
     Indication: IMMUNOSUPPRESSION
     Dosage: 4 MG, BID
     Route: 048
     Dates: start: 201101
  3. CERTICAN [Suspect]
     Active Substance: EVEROLIMUS
     Indication: IMMUNOSUPPRESSION
     Dosage: 1.5 MG, BID
     Route: 048
     Dates: start: 20100521, end: 201012
  4. CORTANCYL [Concomitant]
     Active Substance: PREDNISONE
     Indication: IMMUNOSUPPRESSION
     Dosage: 5 MG, BID
     Route: 048
     Dates: start: 20100325, end: 20110429

REACTIONS (3)
  - Glomerular vascular disorder [Not Recovered/Not Resolved]
  - Kidney transplant rejection [Not Recovered/Not Resolved]
  - Chronic allograft nephropathy [Not Recovered/Not Resolved]

NARRATIVE: CASE EVENT DATE: 20110429
